FAERS Safety Report 7336237 (Version 3)
Quarter: 2013Q4

REPORT INFORMATION
  Report Type: Spontaneous
  Country: US (occurrence: US)
  Receive Date: 20100330
  Receipt Date: 20131111
  Transmission Date: 20140711
  Serious: Yes (Hospitalization)
  Sender: FDA-Public Use
  Company Number: US-BAYER-201013929NA

PATIENT
  Age: 23 Year
  Sex: Female
  Weight: 73 kg

DRUGS (19)
  1. YAZ [Suspect]
     Route: 048
  2. YASMIN [Suspect]
     Indication: ORAL CONTRACEPTION
     Dosage: UNK
     Route: 048
     Dates: start: 2003, end: 20100615
  3. OCELLA [Suspect]
     Indication: ORAL CONTRACEPTION
     Dosage: UNK
     Route: 048
     Dates: start: 2003, end: 20100615
  4. AMOXICILLIN [Concomitant]
     Dates: start: 20090203
  5. ALEVE [Concomitant]
     Dosage: SINCE CHILDHOOD
  6. IBUPROFEN [Concomitant]
     Dosage: SINCE CHILDHOOD
  7. KEPPRA [Concomitant]
     Indication: ANXIETY
     Dosage: 500 MG (DAILY DOSE), QD,
     Dates: start: 2009
  8. ADDERALL [Concomitant]
     Indication: ATTENTION DEFICIT/HYPERACTIVITY DISORDER
     Dates: start: 2002, end: 2004
  9. LEXAPRO [Concomitant]
     Indication: DEPRESSION
     Dates: start: 2002, end: 2005
  10. LEXAPRO [Concomitant]
     Indication: DEPRESSION
     Dosage: 10 MG (DAILY DOSE), QD,
     Dates: start: 2009
  11. LEVETIRACETAM [Concomitant]
  12. NITROFURANTOIN [Concomitant]
  13. SULFAMETHOXYPYRIDAZINE/TRIMETHOPRIM [Concomitant]
  14. OXYCODONE [Concomitant]
  15. PROMETHAZINE [Concomitant]
  16. HYDROCODONE W/APAP [Concomitant]
  17. FLUTICASONE [Concomitant]
  18. LEXAPRO [Concomitant]
     Dosage: 10 MG (DAILY DOSE), QD,
     Dates: start: 2009
  19. MACROBID [Concomitant]
     Dosage: 100 UNK, BID

REACTIONS (5)
  - Cholecystitis [None]
  - Cholelithiasis [None]
  - Injury [None]
  - Abdominal pain upper [None]
  - Dyspepsia [None]
